FAERS Safety Report 15406429 (Version 2)
Quarter: 2025Q1

REPORT INFORMATION
  Report Type: Spontaneous
  Country: CA (occurrence: CA)
  Receive Date: 20180920
  Receipt Date: 20250311
  Transmission Date: 20250409
  Serious: Yes (Other)
  Sender: NOVARTIS
  Company Number: PHHY2018CA095547

PATIENT
  Age: 10 Year
  Sex: Male

DRUGS (2)
  1. TRAMETINIB [Suspect]
     Active Substance: TRAMETINIB
     Indication: Astrocytoma, low grade
     Dosage: 0.011 MG/KG, QD
     Route: 065
  2. TRAMETINIB [Suspect]
     Active Substance: TRAMETINIB
     Dosage: 0.022 MG/KG, QD
     Route: 065

REACTIONS (7)
  - Hydrocephalus [Unknown]
  - Rash [Unknown]
  - Astrocytoma, low grade [Unknown]
  - Malignant neoplasm progression [Unknown]
  - Dermatitis acneiform [Recovering/Resolving]
  - Eczema [Recovering/Resolving]
  - Diarrhoea [Recovered/Resolved]
